FAERS Safety Report 12379109 (Version 4)
Quarter: 2016Q4

REPORT INFORMATION
  Report Type: Spontaneous
  Country: PT (occurrence: PT)
  Receive Date: 20160517
  Receipt Date: 20161121
  Transmission Date: 20170207
  Serious: Yes (Hospitalization, Other)
  Sender: FDA-Public Use
  Company Number: PT-GILEAD-2016-0199244

PATIENT
  Age: 61 Year
  Sex: Male

DRUGS (4)
  1. ZYDELIG [Suspect]
     Active Substance: IDELALISIB
     Dosage: 100 MG, BID
     Route: 065
     Dates: start: 20160226, end: 20160317
  2. ZYDELIG [Suspect]
     Active Substance: IDELALISIB
     Dosage: UNK
     Route: 065
     Dates: start: 20160226
  3. ZYDELIG [Suspect]
     Active Substance: IDELALISIB
     Indication: B-CELL LYMPHOMA
     Dosage: 150 MG, UNK
     Route: 065
     Dates: start: 20151218, end: 20160216
  4. ZYDELIG [Suspect]
     Active Substance: IDELALISIB
     Dosage: 150 MG, BID
     Route: 065
     Dates: start: 20151211, end: 20160216

REACTIONS (9)
  - Cough [Recovered/Resolved]
  - Aspergillus infection [Unknown]
  - Disease progression [Unknown]
  - Dyspnoea exertional [Recovered/Resolved]
  - Pneumonitis [Unknown]
  - Pyrexia [Recovered/Resolved]
  - Sputum purulent [Unknown]
  - Interstitial lung disease [Recovered/Resolved]
  - Productive cough [Unknown]

NARRATIVE: CASE EVENT DATE: 2016
